FAERS Safety Report 7956793-X (Version None)
Quarter: 2011Q4

REPORT INFORMATION
  Report Type: 
  Country: None (occurrence: None)
  Receive Date: 20111205
  Receipt Date: 20111005
  Transmission Date: 20120403
  Serious: No
  Sender: FDA-Public Use
  Company Number: US-BAYER-2011-096294

PATIENT
  Age: 58 Year
  Sex: Female
  Weight: 75 kg

DRUGS (2)
  1. TYLENOL (CAPLET) [Concomitant]
  2. ALEVE (CAPLET) [Suspect]
     Indication: ARTHRALGIA
     Dosage: UNK, BID
     Route: 048
     Dates: start: 20110901, end: 20111004

REACTIONS (2)
  - NO ADVERSE EVENT [None]
  - ARTHRALGIA [None]
